FAERS Safety Report 9753019 (Version 4)
Quarter: 2014Q1

REPORT INFORMATION
  Report Type: Spontaneous
  Country: JP (occurrence: JP)
  Receive Date: 20131213
  Receipt Date: 20140102
  Transmission Date: 20141002
  Serious: Yes (Other)
  Sender: FDA-Public Use
  Company Number: JP-JNJFOC-20130903358

PATIENT
  Age: 68 Year
  Sex: Male

DRUGS (2)
  1. TRAMCET [Suspect]
     Indication: PAIN
     Route: 048
  2. DEPAS [Concomitant]
     Indication: INSOMNIA
     Route: 048

REACTIONS (1)
  - Liver disorder [Recovering/Resolving]
